FAERS Safety Report 19046970 (Version 1)
Quarter: 2021Q1

REPORT INFORMATION
  Report Type: Spontaneous
  Country: US (occurrence: US)
  Receive Date: 20210323
  Receipt Date: 20210323
  Transmission Date: 20210420
  Serious: Yes (Other)
  Sender: FDA-Public Use
  Company Number: US-COVIS PHARMA GMBH-2021COV00113

PATIENT
  Sex: Female

DRUGS (2)
  1. ERYTHROMYCIN. [Suspect]
     Active Substance: ERYTHROMYCIN
  2. BETAPACE [Suspect]
     Active Substance: SOTALOL HYDROCHLORIDE

REACTIONS (3)
  - Heart rate increased [Unknown]
  - Unevaluable event [Unknown]
  - Hip fracture [Unknown]
